FAERS Safety Report 8402573-0 (Version None)
Quarter: 2012Q2

REPORT INFORMATION
  Report Type: 
  Country: None (occurrence: None)
  Receive Date: 20120323
  Receipt Date: 20110323
  Transmission Date: 20120825
  Serious: Yes (Hospitalization, Other)
  Sender: FDA-Public Use
  Company Number: 163-21880-10092839

PATIENT
  Age: 68 Year
  Sex: Female
  Weight: 76.6579 kg

DRUGS (24)
  1. ACYCLOVIR (ACICLOVIR) (UNKNOWN) [Concomitant]
  2. LASIX [Concomitant]
  3. NIACIN (NICOTINIC ACID) (UNKNOWN) [Concomitant]
  4. TIMOLOL (TIMOLOL) (UNKNOWN) [Concomitant]
  5. TUMS (CALCIUM CARBONATE) (UNKNOWN) [Concomitant]
  6. FISH OIL (FISH OIL) (UNKNOWN) [Concomitant]
  7. MULTIVITAMINS (MULTIVITAMINS) (UNKNOWN) [Concomitant]
  8. PROCRIT [Concomitant]
  9. GLUCOSAMINE/CHONDROITIN (GLUCOSAMINE W/CHONDROITIN SULFATE) (UNKNOWN) [Concomitant]
  10. VELCADE [Suspect]
     Indication: MULTIPLE MYELOMA
     Dosage: UNK 1 MG/M2, UNK
     Dates: start: 20090121, end: 20090501
  11. VELCADE [Suspect]
     Indication: MULTIPLE MYELOMA
     Dosage: UNK 1 MG/M2, UNK
     Dates: start: 20090511
  12. LISINOPRIL [Concomitant]
  13. ASPIRIN [Concomitant]
  14. REVLIMID [Suspect]
     Indication: MULTIPLE MYELOMA
     Dosage: 25 MG, 1 IN 1 D, PO 15 MG, DAILY, PO 20 MG, DAILY, PO 15 MG, DAILY FOR 21 DAYS/4 WEEK CYCLE, PO
     Route: 048
     Dates: start: 20100201
  15. REVLIMID [Suspect]
     Indication: MULTIPLE MYELOMA
     Dosage: 25 MG, 1 IN 1 D, PO 15 MG, DAILY, PO 20 MG, DAILY, PO 15 MG, DAILY FOR 21 DAYS/4 WEEK CYCLE, PO
     Route: 048
     Dates: start: 20090121
  16. REVLIMID [Suspect]
     Indication: MULTIPLE MYELOMA
     Dosage: 25 MG, 1 IN 1 D, PO 15 MG, DAILY, PO 20 MG, DAILY, PO 15 MG, DAILY FOR 21 DAYS/4 WEEK CYCLE, PO
     Route: 048
     Dates: start: 20090706, end: 20100201
  17. REVLIMID [Suspect]
     Indication: MULTIPLE MYELOMA
     Dosage: 25 MG, 1 IN 1 D, PO 15 MG, DAILY, PO 20 MG, DAILY, PO 15 MG, DAILY FOR 21 DAYS/4 WEEK CYCLE, PO
     Route: 048
     Dates: start: 20101026
  18. DEXAMETHASONE [Suspect]
     Indication: MULTIPLE MYELOMA
     Dosage: UNK 20 MG, DAYS 1, 8, 15, 22 Q4W, UNK
     Dates: start: 20101026
  19. DEXAMETHASONE [Suspect]
     Indication: MULTIPLE MYELOMA
     Dosage: UNK 20 MG, DAYS 1, 8, 15, 22 Q4W, UNK
     Dates: start: 20090121
  20. LOVASTATIN (LOVASTATIN) (UNKNOWN) [Concomitant]
  21. VITAMIN B12 (CYANOCOBALAMIN) (UNKNOWN) [Concomitant]
  22. PAMIDRONATE (PAMIDRONATE DISODIUM) (UNKNOWN) [Concomitant]
  23. CALCIUM +D (OS-CAL) (UNKNOWN) [Concomitant]
  24. TRANSFUSION (BLOOD TRANSFUSION, AUXILIARY PRODUCTS) (UNKNOWN) [Concomitant]

REACTIONS (5)
  - SINUSITIS [None]
  - PNEUMONIA [None]
  - THROMBOCYTOPENIA [None]
  - NEUROPATHY PERIPHERAL [None]
  - THROMBOSIS [None]
